FAERS Safety Report 14183031 (Version 2)
Quarter: 2018Q1

REPORT INFORMATION
  Report Type: Report from Study
  Country: JP (occurrence: JP)
  Receive Date: 20171113
  Receipt Date: 20180129
  Transmission Date: 20180508
  Serious: Yes (Death)
  Sender: FDA-Public Use
  Company Number: JP-UCBSA-2017037685

PATIENT
  Age: 90 Year
  Sex: Female
  Weight: 43 kg

DRUGS (1)
  1. LEVETIRACETAM. [Suspect]
     Active Substance: LEVETIRACETAM
     Indication: PARTIAL SEIZURES WITH SECONDARY GENERALISATION
     Dosage: 500 MG, 2X/DAY (BID)
     Route: 041
     Dates: start: 20161031, end: 20161107

REACTIONS (2)
  - Subdural haematoma [Fatal]
  - Brain herniation [Fatal]

NARRATIVE: CASE EVENT DATE: 2016
